FAERS Safety Report 8140485-0 (Version None)
Quarter: 2012Q1

REPORT INFORMATION
  Report Type: 
  Country: None (occurrence: None)
  Receive Date: 20120214
  Receipt Date: 20120214
  Transmission Date: 20120608
  Serious: No
  Sender: FDA-Public Use
  Company Number: None

PATIENT
  Sex: Male
  Weight: 149.2334 kg

DRUGS (1)
  1. REMICADE [Suspect]
     Dosage: 5MG/KG EVERY 8 WEEK IV
     Route: 042
     Dates: start: 20110426

REACTIONS (2)
  - HYPERSENSITIVITY [None]
  - NEUROPATHY PERIPHERAL [None]
